FAERS Safety Report 18350158 (Version 1)
Quarter: 2020Q4

REPORT INFORMATION
  Report Type: Spontaneous
  Country: US (occurrence: US)
  Receive Date: 20201006
  Receipt Date: 20201006
  Transmission Date: 20210114
  Serious: Yes (Other)
  Sender: FDA-Public Use
  Company Number: NVSC2020US268678

PATIENT
  Age: 65 Year
  Sex: Male

DRUGS (1)
  1. EVEROLIMUS. [Suspect]
     Active Substance: EVEROLIMUS
     Indication: THYMIC CANCER METASTATIC
     Dosage: 5-10 MG, QD 5-10 MG QD, WITH 10 MG BEING THE MAXIMUM AVAILABLE DOSE
     Route: 048

REACTIONS (5)
  - Pneumonia aspiration [Unknown]
  - Product use in unapproved indication [Unknown]
  - Thymic cancer metastatic [Unknown]
  - Treatment failure [Unknown]
  - Malignant neoplasm progression [Unknown]
